FAERS Safety Report 6467632-0 (Version None)
Quarter: 2009Q4

REPORT INFORMATION
  Report Type: 
  Country: None (occurrence: None)
  Receive Date: 20091202
  Receipt Date: 20091120
  Transmission Date: 20100525
  Serious: Yes (Disabling, Other)
  Sender: FDA-Public Use
  Company Number: PHEH2009US10699

PATIENT
  Sex: Female
  Weight: 43.537 kg

DRUGS (5)
  1. COMTAN [Suspect]
     Indication: PARKINSON'S DISEASE
     Dosage: 3/DAY
     Route: 048
     Dates: start: 20040101
  2. SINEMET [Concomitant]
     Indication: TREMOR
     Route: 048
  3. MIRAPEX [Concomitant]
  4. OXYCODONE HCL [Concomitant]
  5. OXYCONTIN [Concomitant]

REACTIONS (4)
  - FINGER AMPUTATION [None]
  - FUNGAL INFECTION [None]
  - MALIGNANT MELANOMA [None]
  - NAIL DISCOLOURATION [None]
